FAERS Safety Report 7399473-4 (Version None)
Quarter: 2011Q2

REPORT INFORMATION
  Report Type: 
  Country: None (occurrence: None)
  Receive Date: 20110407
  Receipt Date: 20110401
  Transmission Date: 20111010
  Serious: Yes (Death, Hospitalization)
  Sender: FDA-Public Use
  Company Number: PHHY2011US05428

PATIENT
  Sex: Male
  Weight: 64.853 kg

DRUGS (8)
  1. M.V.I. [Concomitant]
  2. KLOR-CON [Concomitant]
     Dosage: 10 MEQ ER
  3. NEUPOGEN [Concomitant]
     Dosage: 300 / 0.5
  4. CYCLOSPORINE [Concomitant]
     Dosage: 100 MG,
  5. METOPROLOL [Concomitant]
     Dosage: 25 MG ER
  6. EXJADE [Suspect]
     Dosage: 02 DF, BID/ DISSOLVES 02 TABS UNTIL FINE SUSPENSION IS OBTAINED AND TAKE BY MOUTH TWICE A DAY
     Route: 048
  7. EXJADE [Suspect]
     Dosage: 500 MG,
  8. MAGNESIUM OXIDE [Concomitant]
     Dosage: 400 MG,

REACTIONS (6)
  - PSEUDOMONAS INFECTION [None]
  - DIARRHOEA [None]
  - CEREBRAL HAEMORRHAGE [None]
  - ABDOMINAL DISCOMFORT [None]
  - CHILLS [None]
  - PYREXIA [None]
